FAERS Safety Report 8580251-5 (Version None)
Quarter: 2012Q3

REPORT INFORMATION
  Report Type: 
  Country: None (occurrence: None)
  Receive Date: 20120808
  Receipt Date: 20120724
  Transmission Date: 20120928
  Serious: Yes (Other)
  Sender: FDA-Public Use
  Company Number: CHPA2012US016664

PATIENT
  Age: 49 Year
  Sex: Female

DRUGS (1)
  1. BENEFIBER W/ WHEAT DEXTRIN [Suspect]
     Indication: BOWEL MOVEMENT IRREGULARITY
     Dosage: 2 TO 3 TABLESPOONS, TID
     Route: 048
     Dates: end: 20120723

REACTIONS (6)
  - POLLAKIURIA [None]
  - HYPERTENSION [None]
  - URINARY TRACT INFECTION [None]
  - THERAPEUTIC RESPONSE UNEXPECTED [None]
  - OFF LABEL USE [None]
  - OVERDOSE [None]
